FAERS Safety Report 8760969 (Version 1)
Quarter: 2012Q4

REPORT INFORMATION
  Report Type: 
  Country: FR (occurrence: FR)
  Receive Date: 20120829
  Receipt Date: 20120829
  Transmission Date: 20130627
  Serious: Yes (Hospitalization)
  Sender: FDA-Public Use
  Company Number: FR-ELI_LILLY_AND_COMPANY-FR201208005949

PATIENT
  Age: 53 Year
  Sex: Male

DRUGS (7)
  1. CYMBALTA [Suspect]
     Indication: DEPRESSED MOOD
     Dosage: 30 mg, qd
     Route: 048
     Dates: start: 20120622, end: 20120628
  2. PREVISCAN [Concomitant]
     Dosage: 30 mg, qd
     Dates: start: 200805
  3. KARDEGIC [Concomitant]
     Dosage: 75 mg, qd
     Dates: start: 200805
  4. COVERSYL [Concomitant]
     Dosage: 4 mg, qd
     Dates: start: 200805
  5. TAHOR [Concomitant]
     Dosage: 40 mg, qd
     Dates: start: 200805
  6. INIPOMP [Concomitant]
     Dosage: 20 mg, qd
     Dates: start: 200805
  7. CARDENSIEL [Concomitant]
     Dosage: 2.5 mg, qd

REACTIONS (7)
  - Muscle haemorrhage [Recovered/Resolved]
  - Coagulation time shortened [Recovered/Resolved]
  - Coagulation time prolonged [Recovered/Resolved]
  - Fatigue [Recovered/Resolved]
  - Haematoma [Recovered/Resolved]
  - Oedema peripheral [Recovered/Resolved]
  - Drug interaction [Recovered/Resolved]
